FAERS Safety Report 14015505 (Version 1)
Quarter: 2017Q3

REPORT INFORMATION
  Report Type: Other
  Country: CA (occurrence: CA)
  Receive Date: 20170927
  Receipt Date: 20170927
  Transmission Date: 20171128
  Serious: Yes (Hospitalization, Other)
  Sender: FDA-Public Use
  Company Number: CA-APOTEX-2017AP018759

PATIENT
  Age: 54 Year
  Sex: Female

DRUGS (1)
  1. APO-GABAPENTIN [Suspect]
     Active Substance: GABAPENTIN
     Indication: PAIN
     Dosage: UNK
     Route: 065

REACTIONS (7)
  - Psychotic disorder [Unknown]
  - Aggression [Unknown]
  - Suicide attempt [Unknown]
  - Hallucination, auditory [Unknown]
  - Hypertension [Unknown]
  - Mood swings [Unknown]
  - Transient ischaemic attack [Unknown]
